FAERS Safety Report 4839716-1 (Version None)
Quarter: 2005Q4

REPORT INFORMATION
  Report Type: 
  Country: None (occurrence: None)
  Receive Date: 20051129
  Receipt Date: 20050706
  Transmission Date: 20060501
  Serious: Yes (Other)
  Sender: FDA-Public Use
  Company Number: 2005-02494

PATIENT
  Age: 50 Year
  Sex: Female
  Weight: 81.8 kg

DRUGS (15)
  1. BUPROPION HCL [Suspect]
     Indication: DEPRESSION
     Dosage: 150MG TWICE PER DAY
     Route: 048
     Dates: start: 20050530, end: 20050704
  2. LAMICTAL [Suspect]
     Indication: DRUG USE FOR UNKNOWN INDICATION
     Route: 048
     Dates: start: 20040101
  3. LITHIUM [Concomitant]
     Indication: BIPOLAR DISORDER
     Route: 065
  4. ACTOS [Concomitant]
     Route: 065
  5. GLIPIZIDE [Concomitant]
     Route: 065
  6. SYNTHROID [Concomitant]
     Indication: THYROID DISORDER
     Route: 065
  7. AVAPRO [Concomitant]
     Indication: HYPERTENSION
  8. CLONAZEPAM [Concomitant]
     Indication: ANXIETY
     Route: 065
  9. AMBIEN [Concomitant]
  10. ELAVIL [Concomitant]
     Indication: DEPRESSION
     Route: 065
  11. INDERAL [Concomitant]
     Indication: TACHYCARDIA
     Route: 065
  12. PROZAC [Concomitant]
     Indication: DEPRESSION
     Route: 065
  13. EFFEXOR [Concomitant]
     Indication: DEPRESSION
     Route: 065
  14. CLIMARA [Concomitant]
     Indication: HORMONE REPLACEMENT THERAPY
     Route: 065
  15. CHOLESTYRAMINE [Concomitant]

REACTIONS (4)
  - AGITATION [None]
  - DEPRESSION SUICIDAL [None]
  - DRUG INEFFECTIVE [None]
  - SOCIAL PHOBIA [None]
